FAERS Safety Report 6708213-0 (Version None)
Quarter: 2010Q2

REPORT INFORMATION
  Report Type: 
  Country: None (occurrence: None)
  Receive Date: 20100503
  Receipt Date: 20090716
  Transmission Date: 20101027
  Serious: Yes (Other)
  Sender: FDA-Public Use
  Company Number: US-ASTRAZENECA-2009UW20177

PATIENT
  Age: 48 Year
  Sex: Female
  Weight: 65.8 kg

DRUGS (6)
  1. NEXIUM [Suspect]
     Indication: OESOPHAGITIS
     Route: 048
     Dates: start: 20090701, end: 20090716
  2. NEXIUM [Suspect]
     Indication: GASTRITIS
     Route: 048
     Dates: start: 20090701, end: 20090716
  3. NEXIUM [Suspect]
     Indication: DUODENITIS
     Route: 048
     Dates: start: 20090701, end: 20090716
  4. LOVAZA [Concomitant]
  5. ASPIRIN [Concomitant]
  6. NIASPAN [Concomitant]
     Dates: start: 20090501

REACTIONS (3)
  - ARTHRALGIA [None]
  - PRURITUS [None]
  - RASH ERYTHEMATOUS [None]
